FAERS Safety Report 19438292 (Version 1)
Quarter: 2021Q2

REPORT INFORMATION
  Report Type: Spontaneous
  Country: JP (occurrence: JP)
  Receive Date: 20210618
  Receipt Date: 20210618
  Transmission Date: 20210717
  Serious: Yes (Other)
  Sender: FDA-Public Use
  Company Number: JP-SUNOVION-2021SUN002330

PATIENT
  Age: 94 Year
  Sex: Male

DRUGS (5)
  1. LANSOPRAZOLE OD [Concomitant]
     Active Substance: LANSOPRAZOLE
     Dosage: DOSE UNKNOWN
     Route: 048
     Dates: start: 20210602
  2. LUNESTA [Suspect]
     Active Substance: ESZOPICLONE
     Indication: INSOMNIA
     Route: 048
     Dates: start: 20210602, end: 20210602
  3. DONEPEZIL HYDROCHLORIDE OD [Concomitant]
     Active Substance: DONEPEZIL HYDROCHLORIDE
     Dosage: DOSE UNKNOWN
     Route: 048
     Dates: start: 20210602, end: 20210602
  4. YOKUKANSAN [Concomitant]
     Active Substance: HERBALS
     Dosage: DOSE UNKNOWN
     Route: 048
     Dates: start: 20210602
  5. QUETIAPINE. [Concomitant]
     Active Substance: QUETIAPINE
     Dosage: DOSE UNKNOWN
     Route: 048
     Dates: start: 20210602

REACTIONS (2)
  - Hallucination, visual [Recovered/Resolved]
  - Hallucination [Recovered/Resolved]

NARRATIVE: CASE EVENT DATE: 20210603
